FAERS Safety Report 13787178 (Version 1)
Quarter: 2017Q3

REPORT INFORMATION
  Report Type: Spontaneous
  Country: US (occurrence: US)
  Receive Date: 20170725
  Receipt Date: 20170725
  Transmission Date: 20171127
  Serious: Yes (Life-Threatening, Hospitalization, Disabling, Other)
  Sender: FDA-Public Use
  Company Number: None

PATIENT
  Age: 92 Year
  Sex: Female
  Weight: 59.02 kg

DRUGS (10)
  1. PRAVASTATIN. [Concomitant]
     Active Substance: PRAVASTATIN
  2. NAMENDA XR [Concomitant]
     Active Substance: MEMANTINE HYDROCHLORIDE
  3. COQ10 [Concomitant]
     Active Substance: UBIDECARENONE
  4. NAMENDA XR [Suspect]
     Active Substance: MEMANTINE HYDROCHLORIDE
     Indication: DEMENTIA
     Route: 048
     Dates: start: 201506, end: 201512
  5. HYDROCHLOROTHIAZIDE. [Concomitant]
     Active Substance: HYDROCHLOROTHIAZIDE
  6. DONEPEZIL TAB 10MG [Suspect]
     Active Substance: DONEPEZIL
     Route: 048
     Dates: start: 201506, end: 201512
  7. VALSARTAN. [Concomitant]
     Active Substance: VALSARTAN
  8. ASPIRIN. [Concomitant]
     Active Substance: ASPIRIN
  9. CITRACAL [Concomitant]
     Active Substance: CALCIUM CITRATE
  10. CENTRUM SILVER [Concomitant]
     Active Substance: MINERALS\VITAMINS

REACTIONS (5)
  - Condition aggravated [None]
  - Oesophageal stenosis [None]
  - Hypothermia [None]
  - Dementia [None]
  - Dyspepsia [None]

NARRATIVE: CASE EVENT DATE: 20151113
